FAERS Safety Report 11675480 (Version 3)
Quarter: 2017Q4

REPORT INFORMATION
  Report Type: Spontaneous
  Country: US (occurrence: US)
  Receive Date: 20151028
  Receipt Date: 20171110
  Transmission Date: 20180320
  Serious: No
  Sender: FDA-Public Use
  Company Number: US-ACTELION PHARMACEUTICALS US, INC.-A-NJ2015-126238

PATIENT
  Age: 61 Year
  Sex: Female

DRUGS (41)
  1. BUMETANIDE. [Concomitant]
     Active Substance: BUMETANIDE
  2. LIPITOR [Concomitant]
     Active Substance: ATORVASTATIN CALCIUM
  3. PHENDIMETRAZINE TARTRATE. [Concomitant]
     Active Substance: PHENDIMETRAZINE TARTRATE
  4. VITAMIN B12 [Concomitant]
     Active Substance: CYANOCOBALAMIN
  5. HYDROXYZINE HCL [Concomitant]
     Active Substance: HYDROXYZINE HYDROCHLORIDE
  6. SSD [Concomitant]
     Active Substance: SILVER SULFADIAZINE
  7. KETOCONAZOLE. [Concomitant]
     Active Substance: KETOCONAZOLE
     Dosage: 200 MG, UNK
     Dates: start: 20170331
  8. CYCLOBENZAPRINE. [Concomitant]
     Active Substance: CYCLOBENZAPRINE
     Dosage: 10 MG, UNK
  9. ALBUTEROL. [Concomitant]
     Active Substance: ALBUTEROL
  10. ATROVENT [Concomitant]
     Active Substance: IPRATROPIUM BROMIDE
  11. CLONAZEPAM. [Concomitant]
     Active Substance: CLONAZEPAM
  12. SPIRONOLACTONE. [Concomitant]
     Active Substance: SPIRONOLACTONE
  13. ATORVASTATIN CALCIUM. [Concomitant]
     Active Substance: ATORVASTATIN CALCIUM
  14. GABAPENTIN. [Concomitant]
     Active Substance: GABAPENTIN
  15. DICLOFENAC SODIUM. [Concomitant]
     Active Substance: DICLOFENAC SODIUM
  16. METOPROLOL TARTRATE. [Concomitant]
     Active Substance: METOPROLOL TARTRATE
  17. OPSUMIT [Suspect]
     Active Substance: MACITENTAN
     Indication: PULMONARY ARTERIAL HYPERTENSION
     Dosage: 10 MG, UNK
     Route: 048
     Dates: start: 20150422
  18. GLUCOSAMINE [Concomitant]
     Active Substance: GLUCOSAMINE
  19. AMLODIPINE BESYLATE. [Concomitant]
     Active Substance: AMLODIPINE BESYLATE
  20. POTASSIUM CHLORIDE. [Concomitant]
     Active Substance: POTASSIUM CHLORIDE
  21. NASONEX [Concomitant]
     Active Substance: MOMETASONE FUROATE
  22. BUDESONIDE. [Concomitant]
     Active Substance: BUDESONIDE
  23. BENZONATATE. [Concomitant]
     Active Substance: BENZONATATE
  24. FUROSEMIDE. [Concomitant]
     Active Substance: FUROSEMIDE
  25. PRAMIPEXOLE DIHYDROCHLORIDE. [Concomitant]
     Active Substance: PRAMIPEXOLE DIHYDROCHLORIDE
  26. TYLENOL [Concomitant]
     Active Substance: ACETAMINOPHEN
     Dosage: 650 MG, UNK
  27. BROVANA [Concomitant]
     Active Substance: ARFORMOTEROL TARTRATE
  28. NAPROXEN. [Concomitant]
     Active Substance: NAPROXEN
     Dosage: 500 MG, UNK
  29. QSYMIA [Concomitant]
     Active Substance: PHENTERMINE HYDROCHLORIDE\TOPIRAMATE
  30. FISH OIL [Concomitant]
     Active Substance: FISH OIL
  31. TORSEMIDE. [Concomitant]
     Active Substance: TORSEMIDE
  32. KETOPROFEN. [Concomitant]
     Active Substance: KETOPROFEN
  33. OXYCODONE HYDROCHLORIDE. [Concomitant]
     Active Substance: OXYCODONE HYDROCHLORIDE
  34. NEURONTIN [Concomitant]
     Active Substance: GABAPENTIN
     Dosage: 800 MG, UNK
  35. OMEPRAZOLE. [Concomitant]
     Active Substance: OMEPRAZOLE
  36. METOLAZONE. [Concomitant]
     Active Substance: METOLAZONE
  37. LEVOCETIRIZINE DIHYDROCHLORIDE. [Concomitant]
     Active Substance: LEVOCETIRIZINE DIHYDROCHLORIDE
  38. TEMAZEPAM. [Concomitant]
     Active Substance: TEMAZEPAM
  39. MORPHINE SULFATE. [Concomitant]
     Active Substance: MORPHINE SULFATE
     Dosage: 15 MG, UNK
     Dates: start: 20170320
  40. POTASSIUM GLUCONATE [Concomitant]
     Active Substance: POTASSIUM GLUCONATE
     Dosage: 2 MEQ, UNK
  41. SIMVASTATIN. [Concomitant]
     Active Substance: SIMVASTATIN
     Dosage: 20 MG, UNK

REACTIONS (9)
  - Depressed mood [Unknown]
  - Nasal congestion [Unknown]
  - Frequent bowel movements [Not Recovered/Not Resolved]
  - Drug dose omission [Recovered/Resolved]
  - Decreased interest [Unknown]
  - Pollakiuria [Not Recovered/Not Resolved]
  - Pruritus [Not Recovered/Not Resolved]
  - Sinusitis [Unknown]
  - Vaccination complication [Unknown]

NARRATIVE: CASE EVENT DATE: 20151019
